FAERS Safety Report 23719916 (Version 2)
Quarter: 2024Q2

REPORT INFORMATION
  Report Type: Spontaneous
  Country: AR (occurrence: AR)
  Receive Date: 20240408
  Receipt Date: 20240415
  Transmission Date: 20240716
  Serious: No
  Sender: FDA-Public Use
  Company Number: AR-MYLANLABS-2024M1030622

PATIENT
  Age: 12 Year
  Sex: Male

DRUGS (1)
  1. CLOZAPINE [Suspect]
     Active Substance: CLOZAPINE
     Indication: Product used for unknown indication
     Dosage: UNK
     Route: 065
     Dates: start: 20120712

REACTIONS (2)
  - Dengue fever [Unknown]
  - Off label use [Unknown]

NARRATIVE: CASE EVENT DATE: 20120712
